FAERS Safety Report 11552651 (Version 6)
Quarter: 2016Q4

REPORT INFORMATION
  Report Type: Report from Study
  Country: CA (occurrence: CA)
  Receive Date: 20150925
  Receipt Date: 20161213
  Transmission Date: 20170206
  Serious: Yes (Hospitalization, Other)
  Sender: FDA-Public Use
  Company Number: CA-ROCHE-1556746

PATIENT
  Age: 50 Year
  Sex: Female

DRUGS (15)
  1. DIPHENHYDRAMINE HCL [Concomitant]
     Active Substance: DIPHENHYDRAMINE HYDROCHLORIDE
     Indication: PREMEDICATION
     Route: 048
     Dates: start: 20150325
  2. CALCITE [Concomitant]
     Active Substance: CALCIUM CARBONATE
  3. OMEPRAZOLE. [Concomitant]
     Active Substance: OMEPRAZOLE
  4. METHOTREXATE. [Concomitant]
     Active Substance: METHOTREXATE
  5. SYNTHROID [Concomitant]
     Active Substance: LEVOTHYROXINE SODIUM
  6. PLAQUENIL [Concomitant]
     Active Substance: HYDROXYCHLOROQUINE SULFATE
  7. METHYLPREDNISOLONE. [Concomitant]
     Active Substance: METHYLPREDNISOLONE
     Indication: PREMEDICATION
     Route: 042
     Dates: start: 20150325
  8. AAS [Concomitant]
     Active Substance: ASPIRIN
  9. SPIRIVA [Concomitant]
     Active Substance: TIOTROPIUM BROMIDE MONOHYDRATE
  10. SALBUTAMOL [Concomitant]
     Active Substance: ALBUTEROL
  11. NAPROXEN. [Concomitant]
     Active Substance: NAPROXEN
  12. RITUXAN [Suspect]
     Active Substance: RITUXIMAB
     Indication: RHEUMATOID ARTHRITIS
     Dosage: DAY 1 AND 15, LAST INFUSION OF RITUXIMAB ON 09/APR/2015?LAST INFUSION: 01/DEC/2016
     Route: 042
     Dates: start: 20150325
  13. ACETAMINOPHEN. [Concomitant]
     Active Substance: ACETAMINOPHEN
     Indication: PREMEDICATION
     Route: 048
     Dates: start: 20150325
  14. FOLIC ACID. [Concomitant]
     Active Substance: FOLIC ACID
  15. SSZ [Concomitant]
     Active Substance: SULFASALAZINE

REACTIONS (5)
  - Oedema peripheral [Not Recovered/Not Resolved]
  - Oral mucosal discolouration [Unknown]
  - Bronchitis [Not Recovered/Not Resolved]
  - Labyrinthitis [Recovered/Resolved]
  - Infusion related reaction [Recovered/Resolved]

NARRATIVE: CASE EVENT DATE: 20150325
